FAERS Safety Report 8185670-7 (Version None)
Quarter: 2012Q1

REPORT INFORMATION
  Report Type: 
  Country: None (occurrence: None)
  Receive Date: 20120305
  Receipt Date: 20120223
  Transmission Date: 20120608
  Serious: Yes (Other)
  Sender: FDA-Public Use
  Company Number: US-PERRIGO-12US001609

PATIENT
  Sex: Female
  Weight: 52.154 kg

DRUGS (2)
  1. PHENYLEPHRINE HCL [Suspect]
     Indication: ACCIDENTAL EXPOSURE
     Dosage: TWO DROPS, ONCE
     Route: 047
     Dates: start: 20120222, end: 20120222
  2. VISINE EYE DROPS [Concomitant]
     Indication: DRY EYE
     Dosage: PRN
     Route: 047

REACTIONS (3)
  - EYE IRRITATION [None]
  - ACCIDENTAL EXPOSURE [None]
  - VISION BLURRED [None]
